FAERS Safety Report 10311218 (Version 1)
Quarter: 2014Q3

REPORT INFORMATION
  Report Type: Report from Study
  Country: GB (occurrence: GB)
  Receive Date: 20140717
  Receipt Date: 20140717
  Transmission Date: 20150326
  Serious: Yes (Death)
  Sender: FDA-Public Use
  Company Number: GB-ROCHE-1436616

PATIENT
  Age: 66 Year
  Sex: Male

DRUGS (7)
  1. BEVACIZUMAB [Suspect]
     Active Substance: BEVACIZUMAB
     Indication: NEOPLASM MALIGNANT
     Route: 042
     Dates: end: 20140429
  2. SODIUM CHLORIDE. [Concomitant]
     Active Substance: SODIUM CHLORIDE
     Indication: NEOPLASM MALIGNANT
     Route: 042
     Dates: end: 20130429
  3. DOMPERIDONE [Concomitant]
     Active Substance: DOMPERIDONE
     Indication: NEOPLASM MALIGNANT
     Route: 048
     Dates: end: 20130429
  4. FLUOROURACIL. [Concomitant]
     Active Substance: FLUOROURACIL
     Indication: NEOPLASM MALIGNANT
     Dosage: SV 2.5 INFUSOR
     Route: 065
     Dates: end: 20130429
  5. FOLINIC ACID [Concomitant]
     Active Substance: LEUCOVORIN
     Indication: NEOPLASM MALIGNANT
     Dosage: BOLUS
     Route: 042
     Dates: end: 20130429
  6. LOPERAMIDE [Concomitant]
     Active Substance: LOPERAMIDE
     Indication: NEOPLASM MALIGNANT
     Route: 048
     Dates: end: 20130429
  7. FLUOROURACIL. [Concomitant]
     Active Substance: FLUOROURACIL
     Route: 042

REACTIONS (1)
  - Death [Fatal]
